FAERS Safety Report 10198069 (Version 2)
Quarter: 2014Q2

REPORT INFORMATION
  Report Type: Report from Study
  Country: JP (occurrence: JP)
  Receive Date: 20140527
  Receipt Date: 20140627
  Transmission Date: 20141212
  Serious: Yes (Hospitalization, Other)
  Sender: FDA-Public Use
  Company Number: JP-TAKEDA-2014TUS004166

PATIENT
  Age: 66 Year
  Sex: Male

DRUGS (26)
  1. FEBURIC [Suspect]
     Indication: HYPERURICAEMIA
     Dosage: 10 MG, QD
     Route: 048
     Dates: start: 20130221, end: 20130508
  2. FEBURIC [Suspect]
     Dosage: 20 MG, QD
     Route: 048
     Dates: start: 20130509, end: 20131027
  3. PROGRAF [Suspect]
     Indication: MYASTHENIA GRAVIS
     Dosage: 3 MG, UNK
     Route: 048
     Dates: start: 20130221, end: 20131027
  4. DIOVAN [Suspect]
     Indication: HYPERTENSION
     Dosage: 80 MG, UNK
     Route: 048
     Dates: start: 20130403, end: 20130424
  5. DIOVAN [Suspect]
     Dosage: 40 MG, UNK
     Route: 048
     Dates: start: 20130425, end: 20130504
  6. DIOVAN [Suspect]
     Dosage: 40 MG, UNK
     Route: 048
     Dates: start: 20130514, end: 20130621
  7. DIOVAN [Suspect]
     Dosage: 20 MG, UNK
     Route: 048
     Dates: start: 20130622, end: 20131027
  8. BONALON [Concomitant]
     Indication: OSTEOPOROSIS PROPHYLAXIS
     Dosage: 35 MG, QD
     Route: 048
     Dates: start: 20130221, end: 20131027
  9. GASTROM [Concomitant]
     Indication: GASTRITIS PROPHYLAXIS
     Dosage: 3.0 G, QD
     Route: 048
     Dates: start: 20130221, end: 20131027
  10. NIVADIL [Concomitant]
     Indication: HYPERTENSION
     Dosage: 8 MG, QD
     Route: 048
     Dates: start: 20130221, end: 20131027
  11. PREDONINE                          /00016201/ [Concomitant]
     Indication: MYASTHENIA GRAVIS
     Dosage: 10 MG, QD
     Route: 048
     Dates: start: 20130221, end: 20131027
  12. INDERAL LA [Concomitant]
     Indication: HYPERTENSION
     Dosage: 60 MG, QD
     Route: 048
     Dates: start: 20130221, end: 20131027
  13. BEZATOL SR [Concomitant]
     Indication: HYPERLIPIDAEMIA
     Dosage: 400 MG, QD
     Route: 048
     Dates: start: 20130221, end: 20131027
  14. OLMETEC [Concomitant]
     Indication: HYPERTENSION
     Dosage: 20 MG, QD
     Route: 048
     Dates: start: 20130221, end: 20130402
  15. COVERSYL                           /00790702/ [Concomitant]
     Indication: HYPERTENSION
     Dosage: 8 MG, QD
     Route: 048
     Dates: start: 20130221, end: 20130314
  16. COVERSYL                           /00790702/ [Concomitant]
     Dosage: 4 UNK, UNK
     Route: 048
     Dates: start: 20130315, end: 20130402
  17. THYRADIN S [Concomitant]
     Indication: HYPOTHYROIDISM
     Dosage: 75 ?G, QD
     Route: 048
     Dates: start: 20130221, end: 20131027
  18. METHYCOBAL [Concomitant]
     Indication: LUMBAR SPINAL STENOSIS
     Dosage: 1000 ?G, QD
     Route: 048
     Dates: start: 20130221, end: 20131027
  19. KALIMATE [Concomitant]
     Indication: HYPERKALAEMIA
     Dosage: 50 G, QD
     Route: 048
     Dates: start: 20130620, end: 20131027
  20. NEUROTROPIN                        /00398601/ [Concomitant]
     Indication: BACK PAIN
     Dosage: 16 IU, QD
     Route: 048
     Dates: start: 20131022, end: 20131027
  21. CALONAL [Concomitant]
     Indication: BACK PAIN
     Dosage: 2400 MG, QD
     Route: 048
     Dates: start: 20131022, end: 20131027
  22. LYRICA [Concomitant]
     Indication: BACK PAIN
     Dosage: 50 MG, QD
     Route: 048
     Dates: start: 20131022, end: 20131027
  23. MIRACLID [Concomitant]
     Indication: PANCREATITIS ACUTE
     Dosage: 2 MG, QD
     Route: 041
     Dates: start: 20131029, end: 20131114
  24. MEROPEN                            /01250501/ [Concomitant]
     Indication: PANCREATITIS ACUTE
     Dosage: 1 G, QD
     Route: 041
     Dates: start: 20131029, end: 20131110
  25. FUTHAN [Concomitant]
     Indication: PANCREATITIS ACUTE
     Dosage: 200 MG, QD
     Route: 041
     Dates: start: 20131029, end: 20131118
  26. OMEPRAL                            /00661201/ [Concomitant]
     Indication: PANCREATITIS ACUTE
     Dosage: 20 MG, QD
     Route: 041
     Dates: start: 20131029, end: 20131118

REACTIONS (5)
  - Intraductal papillary-mucinous carcinoma of pancreas [Not Recovered/Not Resolved]
  - Pancreatitis acute [Recovering/Resolving]
  - Hyperkalaemia [Recovered/Resolved]
  - Back pain [Not Recovered/Not Resolved]
  - Hepatic function abnormal [Recovered/Resolved]
